FAERS Safety Report 24744957 (Version 1)
Quarter: 2024Q4

REPORT INFORMATION
  Report Type: Report from Study
  Country: CA (occurrence: CA)
  Receive Date: 20241217
  Receipt Date: 20241217
  Transmission Date: 20250115
  Serious: Yes (Other)
  Sender: THEA PHARMA INC.
  Company Number: CA-THEA-2024002854

PATIENT
  Sex: Female

DRUGS (1)
  1. LATANOPROST [Suspect]
     Active Substance: LATANOPROST
     Indication: Glaucoma
     Dosage: 1 EVERY 1 DAY
     Route: 047

REACTIONS (1)
  - Blindness transient [Not Recovered/Not Resolved]
